FAERS Safety Report 4763587-5 (Version None)
Quarter: 2005Q3

REPORT INFORMATION
  Report Type: 
  Country: None (occurrence: None)
  Receive Date: 20050908
  Receipt Date: 20050729
  Transmission Date: 20060218
  Serious: Yes (Hospitalization, Disabling)
  Sender: FDA-Public Use
  Company Number: US-MERCK-0508USA00671

PATIENT
  Age: 60 Year
  Sex: Female
  Weight: 90 kg

DRUGS (13)
  1. VIOXX [Suspect]
     Indication: OSTEOARTHRITIS
     Route: 048
  2. VIOXX [Suspect]
     Route: 048
     Dates: start: 19990101, end: 20010101
  3. VIOXX [Suspect]
     Route: 048
     Dates: start: 19990101, end: 20010101
  4. VIOXX [Suspect]
     Route: 048
     Dates: start: 20030601, end: 20040901
  5. VIOXX [Suspect]
     Route: 048
     Dates: start: 20030601, end: 20040901
  6. VIOXX [Suspect]
     Indication: FIBROMYALGIA
     Route: 048
  7. VIOXX [Suspect]
     Route: 048
     Dates: start: 19990101, end: 20010101
  8. VIOXX [Suspect]
     Route: 048
     Dates: start: 19990101, end: 20010101
  9. VIOXX [Suspect]
     Route: 048
     Dates: start: 20030601, end: 20040901
  10. VIOXX [Suspect]
     Route: 048
     Dates: start: 20030601, end: 20040901
  11. TYLENOL [Concomitant]
     Route: 065
  12. PROZAC [Concomitant]
     Indication: DEPRESSION
     Route: 065
  13. DESYREL [Concomitant]
     Indication: SLEEP DISORDER
     Route: 065

REACTIONS (2)
  - HYPERTENSION [None]
  - MYOCARDIAL INFARCTION [None]
